FAERS Safety Report 10458194 (Version 1)
Quarter: 2014Q3

REPORT INFORMATION
  Report Type: Spontaneous
  Country: CA (occurrence: CA)
  Receive Date: 20140917
  Receipt Date: 20140917
  Transmission Date: 20150326
  Serious: Yes (Death)
  Sender: FDA-Public Use
  Company Number: CA-CIPLA LTD.-2014CA01346

PATIENT

DRUGS (7)
  1. CISPLATIN. [Suspect]
     Active Substance: CISPLATIN
     Indication: OROPHARYNGEAL CANCER
     Dosage: UNK, ON DAY 1 EVERY THREE WEEKS
     Route: 042
  2. 5-FU [Suspect]
     Active Substance: FLUOROURACIL
     Indication: OROPHARYNGEAL CANCER
     Dosage: 1000 MG/M2, EVERY DAY FROM DAY 1 TO 4 EVERY 3 WEEKS
  3. CARBOPLATIN. [Suspect]
     Active Substance: CARBOPLATIN
     Indication: OROPHARYNGEAL CANCER
     Dosage: 1.5 AUC, WEEEKLY FOR SEVEN WEEKS
     Route: 042
  4. 5-FU [Suspect]
     Active Substance: FLUOROURACIL
     Dosage: UNK
  5. INTENSITY-MODULATED RADIATION THERAPY [Suspect]
     Active Substance: RADIATION THERAPY
     Indication: OROPHARYNGEAL CANCER
     Dosage: 70 GY IN 35 FRACTIONS OVER 7 WEEKS
  6. CIPROFLOXACIN. [Suspect]
     Active Substance: CIPROFLOXACIN
     Indication: PROPHYLAXIS
     Dosage: 500 MG, UNK
     Route: 048
  7. NAB-PACLITAXEL [Suspect]
     Active Substance: PACLITAXEL
     Indication: OROPHARYNGEAL CANCER
     Dosage: UNK, ON DAYS 1 AND 8 EVERY THREE WEEKS
     Route: 042

REACTIONS (2)
  - Metastases to lung [Fatal]
  - Disease progression [Fatal]
